FAERS Safety Report 25239715 (Version 1)
Quarter: 2025Q2

REPORT INFORMATION
  Report Type: Spontaneous
  Country: US (occurrence: US)
  Receive Date: 20250425
  Receipt Date: 20250425
  Transmission Date: 20250716
  Serious: Yes (Other)
  Sender: The J.Molner Company
  Company Number: US-THE J. MOLNER COMPANY-202504000022

PATIENT

DRUGS (5)
  1. LIDOCAINE HYDROCHLORIDE [Suspect]
     Active Substance: LIDOCAINE HYDROCHLORIDE
     Indication: Local anaesthesia
  2. EPINEPHRINE [Concomitant]
     Active Substance: EPINEPHRINE
  3. LEVOTHYROXINE [Concomitant]
     Active Substance: LEVOTHYROXINE
  4. OXYCODONE AND ACETAMINOPHEN [Concomitant]
     Active Substance: ACETAMINOPHEN\OXYCODONE HYDROCHLORIDE
  5. NYSTATIN [Concomitant]
     Active Substance: NYSTATIN

REACTIONS (2)
  - Local anaesthetic systemic toxicity [Recovered/Resolved]
  - Accidental overdose [Recovered/Resolved]
